FAERS Safety Report 19614585 (Version 2)
Quarter: 2021Q3

REPORT INFORMATION
  Report Type: Spontaneous
  Country: US (occurrence: US)
  Receive Date: 20210727
  Receipt Date: 20210810
  Transmission Date: 20211014
  Serious: Yes (Other)
  Sender: FDA-Public Use
  Company Number: US-PFIZER INC-2021902765

PATIENT
  Age: 43 Year
  Sex: Male
  Weight: 98.87 kg

DRUGS (1)
  1. CHANTIX [Suspect]
     Active Substance: VARENICLINE TARTRATE
     Indication: SMOKING CESSATION THERAPY
     Dosage: 1 MG, 2X/DAY
     Dates: start: 20210301, end: 20210531

REACTIONS (3)
  - Type 2 diabetes mellitus [Unknown]
  - Hypersomnia [Unknown]
  - Abnormal dreams [Unknown]
